FAERS Safety Report 12834240 (Version 1)
Quarter: 2016Q4

REPORT INFORMATION
  Report Type: Report from Study
  Country: MX (occurrence: MX)
  Receive Date: 20161010
  Receipt Date: 20161010
  Transmission Date: 20170207
  Serious: Yes (Death)
  Sender: FDA-Public Use
  Company Number: MX-UCBSA-2016038138

PATIENT
  Age: 92 Year
  Sex: Female
  Weight: 56 kg

DRUGS (4)
  1. LEVODOPA/CARBIDOPA [Concomitant]
     Active Substance: CARBIDOPA\LEVODOPA
     Indication: MOVEMENT DISORDER
     Dosage: 1/4 OF A TABLET DAILY
  2. ROTIGOTINE [Suspect]
     Active Substance: ROTIGOTINE
     Dosage: 4 MG, ONCE DAILY (QD)
     Route: 062
     Dates: start: 2011, end: 20160916
  3. ROTIGOTINE [Suspect]
     Active Substance: ROTIGOTINE
     Indication: PARKINSON^S DISEASE
     Dosage: (2 MG/14 HRS)
     Dates: start: 2010
  4. ACETYLSALICYLIC ACID [Concomitant]
     Active Substance: ASPIRIN
     Indication: CARDIAC DISORDER
     Dosage: 1 DF, ONCE DAILY (QD)

REACTIONS (1)
  - Death [Fatal]

NARRATIVE: CASE EVENT DATE: 20160916
